FAERS Safety Report 6644533-6 (Version None)
Quarter: 2010Q1

REPORT INFORMATION
  Report Type: 
  Country: None (occurrence: None)
  Receive Date: 20100319
  Receipt Date: 20100319
  Transmission Date: 20100710
  Serious: Yes (Other)
  Sender: FDA-Public Use
  Company Number: None

PATIENT
  Sex: Female
  Weight: 90.2658 kg

DRUGS (1)
  1. WARFARIN SODIUM [Suspect]
     Indication: DEEP VEIN THROMBOSIS
     Dosage: 5 MG DAILY PO
     Route: 048
     Dates: start: 20030301, end: 20030601

REACTIONS (3)
  - INCREASED TENDENCY TO BRUISE [None]
  - PRODUCT SUBSTITUTION ISSUE [None]
  - VITREOUS HAEMORRHAGE [None]
